FAERS Safety Report 24926967 (Version 2)
Quarter: 2025Q1

REPORT INFORMATION
  Report Type: Report from Study
  Country: FR (occurrence: FR)
  Receive Date: 20250205
  Receipt Date: 20250214
  Transmission Date: 20250408
  Serious: Yes (Death)
  Sender: TAKEDA
  Company Number: FR-TAKEDA-2025TUS012323

PATIENT
  Sex: Male

DRUGS (1)
  1. FRUQUINTINIB [Suspect]
     Active Substance: FRUQUINTINIB
     Indication: Product used for unknown indication
     Dates: start: 20240829, end: 20241021

REACTIONS (2)
  - General physical health deterioration [Fatal]
  - Liver disorder [Unknown]

NARRATIVE: CASE EVENT DATE: 20241107
